FAERS Safety Report 23270982 (Version 1)
Quarter: 2023Q4

REPORT INFORMATION
  Report Type: Spontaneous
  Country: KR (occurrence: KR)
  Receive Date: 20231207
  Receipt Date: 20231207
  Transmission Date: 20240109
  Serious: Yes (Death)
  Sender: FDA-Public Use
  Company Number: KR-BAYER-2023A174651

PATIENT
  Age: 48 Year
  Sex: Female

DRUGS (1)
  1. STIVARGA [Suspect]
     Active Substance: REGORAFENIB
     Dosage: UNK
     Dates: start: 20211215

REACTIONS (2)
  - Multiple organ dysfunction syndrome [Fatal]
  - Colorectal cancer [Fatal]
